FAERS Safety Report 8630040 (Version 3)
Quarter: 2014Q2

REPORT INFORMATION
  Report Type: Spontaneous
  Country: US (occurrence: US)
  Receive Date: 20120622
  Receipt Date: 20140422
  Transmission Date: 20141212
  Serious: Yes (Other)
  Sender: FDA-Public Use
  Company Number: US-ASTRAZENECA-2012SE36256

PATIENT
  Age: 53 Year
  Sex: Female

DRUGS (19)
  1. NEXIUM [Suspect]
     Indication: GASTROOESOPHAGEAL REFLUX DISEASE
     Dosage: ONCE DAILY
     Route: 048
  2. NEXIUM [Suspect]
     Indication: GASTROOESOPHAGEAL REFLUX DISEASE
     Route: 048
     Dates: start: 20040607
  3. PRILOSEC [Suspect]
     Route: 048
  4. ZANTAC [Concomitant]
  5. XANAX [Concomitant]
  6. SEROQUEL [Concomitant]
     Route: 048
  7. SEROQUEL [Concomitant]
     Route: 048
     Dates: start: 20041108
  8. LORAZEPAM [Concomitant]
  9. LORAZEPAM [Concomitant]
     Route: 048
     Dates: start: 20040903
  10. CYMBALTA [Concomitant]
  11. CYMBALTA [Concomitant]
     Route: 048
     Dates: start: 20070815
  12. LYRICA [Concomitant]
     Route: 048
  13. ASPIRIN [Concomitant]
     Route: 048
     Dates: start: 20070815
  14. BENZTROPINE [Concomitant]
     Route: 048
     Dates: start: 20080209
  15. CYCLOBENZAPRINE [Concomitant]
     Route: 048
     Dates: start: 20080209
  16. TRAMADOL [Concomitant]
     Route: 048
     Dates: start: 20041103
  17. IBUPROFEN [Concomitant]
     Route: 048
     Dates: start: 20041012
  18. HYDROCODONE/APAP [Concomitant]
     Dosage: 5/500 MG
     Route: 048
     Dates: start: 20080211
  19. AMITRIPTYLINE [Concomitant]
     Route: 048
     Dates: start: 20061003

REACTIONS (10)
  - Ankle fracture [Unknown]
  - Fall [Unknown]
  - Osteoporosis [Unknown]
  - Lupus-like syndrome [Unknown]
  - Upper limb fracture [Unknown]
  - Arthritis [Unknown]
  - Type 2 diabetes mellitus [Unknown]
  - Intervertebral disc degeneration [Unknown]
  - Intervertebral disc protrusion [Unknown]
  - Fibula fracture [Unknown]
